FAERS Safety Report 15118752 (Version 2)
Quarter: 2019Q1

REPORT INFORMATION
  Report Type: Report from Study
  Country: None (occurrence: BR)
  Receive Date: 20180709
  Receipt Date: 20190213
  Transmission Date: 20190417
  Serious: Yes (Other)
  Sender: FDA-Public Use
  Company Number: BR-ABBVIE-18K-020-2411710-00

PATIENT
  Age: 50 Year
  Sex: Female
  Weight: 51 kg

DRUGS (11)
  1. HUMIRA [Suspect]
     Active Substance: ADALIMUMAB
     Indication: COLITIS ULCERATIVE
     Dosage: WEEK 0
     Route: 058
     Dates: start: 2009, end: 2009
  2. URSACOL [Concomitant]
     Active Substance: URSODIOL
     Indication: PROPHYLAXIS
  3. AZATHIOPRINE. [Concomitant]
     Active Substance: AZATHIOPRINE
     Indication: PROPHYLAXIS
  4. HUMIRA [Suspect]
     Active Substance: ADALIMUMAB
     Dosage: WEEK 02
     Route: 058
     Dates: end: 201811
  5. MESALAZINE [Concomitant]
     Active Substance: MESALAMINE
     Indication: COLITIS ULCERATIVE
  6. URSACOL [Concomitant]
     Active Substance: URSODIOL
     Indication: CHOLANGITIS SCLEROSING
  7. TRAMAL [Concomitant]
     Active Substance: TRAMADOL
     Indication: MUSCLE RELAXANT THERAPY
  8. MELAGRIAO [Concomitant]
     Indication: COUGH
  9. TRAMAL [Concomitant]
     Active Substance: TRAMADOL
     Indication: OSTEOPOROSIS
  10. OMEPRAZOLE. [Concomitant]
     Active Substance: OMEPRAZOLE
     Indication: PROPHYLAXIS
  11. HUMIRA [Suspect]
     Active Substance: ADALIMUMAB
     Dosage: WEEK 02
     Route: 058

REACTIONS (14)
  - Bone density decreased [Unknown]
  - Vitamin D decreased [Not Recovered/Not Resolved]
  - Pubis fracture [Unknown]
  - Venous thrombosis [Recovering/Resolving]
  - Respiratory disorder [Unknown]
  - Gallbladder disorder [Unknown]
  - Anaemia [Recovering/Resolving]
  - Cough [Recovered/Resolved]
  - Liver disorder [Unknown]
  - Biliary tract disorder [Unknown]
  - Osteoporosis [Unknown]
  - Therapeutic response unexpected [Unknown]
  - Body height decreased [Recovering/Resolving]
  - Venous thrombosis [Unknown]

NARRATIVE: CASE EVENT DATE: 2014
